FAERS Safety Report 7360913-8 (Version None)
Quarter: 2011Q1

REPORT INFORMATION
  Report Type: 
  Country: None (occurrence: None)
  Receive Date: 20110318
  Receipt Date: 20101215
  Transmission Date: 20110831
  Serious: Yes (Hospitalization, Other)
  Sender: FDA-Public Use
  Company Number: US-BAYER-201012150NA

PATIENT
  Sex: Female
  Weight: 96.599 kg

DRUGS (19)
  1. YAZ [Suspect]
     Indication: MENOPAUSE
     Dosage: 1 DF (DAILY DOSE), QD, ORAL
     Route: 048
     Dates: start: 20071001, end: 20080404
  2. MERIDIA [Concomitant]
     Dosage: UNK
     Dates: start: 20070701
  3. MELOXICAM [Concomitant]
     Dosage: UNK
     Dates: start: 20080201
  4. WARFARIN SODIUM [Concomitant]
     Dosage: 8 MG, QD
     Route: 048
     Dates: start: 20080824
  5. WARFARIN SODIUM [Concomitant]
     Dosage: 5 MG, QD
     Route: 048
     Dates: start: 20080411
  6. ANTIBIOTICS [Concomitant]
  7. MELOXICAM [Concomitant]
     Dosage: 15 MG, BIW
     Route: 048
     Dates: start: 20080208
  8. ANTITHROMBOTIC AGENTS [Concomitant]
  9. VITAMINS NOS [Concomitant]
  10. BELLAMINE S [Concomitant]
     Dosage: UNK
     Dates: start: 20060701
  11. UNCODEABLE ^UNCLASSIFIABLE^ [Concomitant]
     Dosage: UNK
     Dates: start: 20070101
  12. LUNESTA [Concomitant]
     Indication: INSOMNIA
     Dosage: UNK
     Dates: start: 20080101
  13. PHENTERMINE [Concomitant]
     Dosage: UNK
     Dates: start: 20080301
  14. CIPROFLOXACIN [Concomitant]
     Dosage: UNK
     Dates: start: 20060801
  15. PHENAZOPYRIDINE HCL TAB [Concomitant]
     Dosage: UNK
     Dates: start: 20060801
  16. UNCODEABLE ^UNCLASSIFIABLE^ [Concomitant]
     Dosage: UNK
     Dates: start: 20060101
  17. HYDROCODONE BITARTRATE AND ACETAMINOPHEN [Concomitant]
     Dosage: 5MG/500MG 6 TO 8 HOURS AS NEEDED
     Route: 048
     Dates: start: 20080208
  18. ASCORBIC ACID [Concomitant]
  19. HYDROCODONE BITARTRATE [Concomitant]
     Indication: PAIN
     Dosage: UNK
     Dates: start: 20080101

REACTIONS (7)
  - DIZZINESS [None]
  - DEEP VEIN THROMBOSIS [None]
  - PAIN IN EXTREMITY [None]
  - CHEST DISCOMFORT [None]
  - HEART RATE INCREASED [None]
  - OEDEMA PERIPHERAL [None]
  - PULMONARY EMBOLISM [None]
